FAERS Safety Report 6635897-8 (Version None)
Quarter: 2010Q1

REPORT INFORMATION
  Report Type: 
  Country: None (occurrence: None)
  Receive Date: 20100316
  Receipt Date: 20100305
  Transmission Date: 20100710
  Serious: Yes (Hospitalization, Other)
  Sender: FDA-Public Use
  Company Number: PHEH2010US02554

PATIENT
  Sex: Female
  Weight: 72.2 kg

DRUGS (5)
  1. EXJADE [Suspect]
     Indication: SICKLE CELL ANAEMIA
     Dosage: 1500 MG, QD
     Route: 048
     Dates: start: 20060522
  2. EXJADE [Suspect]
     Dosage: 1500 MG, QD
     Route: 048
  3. MS CONTIN [Concomitant]
  4. VICODIN [Concomitant]
  5. ASPIRIN [Concomitant]

REACTIONS (1)
  - HIP ARTHROPLASTY [None]
